FAERS Safety Report 19523569 (Version 1)
Quarter: 2021Q3

REPORT INFORMATION
  Report Type: Spontaneous
  Country: US (occurrence: US)
  Receive Date: 20210712
  Receipt Date: 20210712
  Transmission Date: 20211014
  Serious: Yes (Other)
  Sender: FDA-Public Use
  Company Number: US-PFIZER INC-2021799622

PATIENT
  Sex: Female
  Weight: 53.07 kg

DRUGS (3)
  1. NORPACE [Suspect]
     Active Substance: DISOPYRAMIDE PHOSPHATE
     Indication: ATRIAL FIBRILLATION
     Dosage: 150 MG, 2X/DAY
     Dates: start: 20210611
  2. SOTALOL. [Concomitant]
     Active Substance: SOTALOL
     Dosage: UNK
  3. FLECAINIDE [Concomitant]
     Active Substance: FLECAINIDE
     Dosage: UNK

REACTIONS (14)
  - Fatigue [Unknown]
  - Blood urea increased [Unknown]
  - Alanine aminotransferase increased [Unknown]
  - Dry mouth [Unknown]
  - Urinary hesitation [Unknown]
  - Muscular weakness [Unknown]
  - Abdominal distension [Unknown]
  - C-reactive protein increased [Unknown]
  - Blood creatine increased [Unknown]
  - Blood calcium increased [Unknown]
  - Off label use [Unknown]
  - Vision blurred [Unknown]
  - Peripheral swelling [Unknown]
  - Aspartate aminotransferase increased [Unknown]

NARRATIVE: CASE EVENT DATE: 20210611
